FAERS Safety Report 9040768 (Version 2)
Quarter: 2013Q2

REPORT INFORMATION
  Report Type: Spontaneous
  Country: IT (occurrence: IT)
  Receive Date: 20130129
  Receipt Date: 20130612
  Transmission Date: 20140414
  Serious: Yes (Hospitalization)
  Sender: FDA-Public Use
  Company Number: IT-JNJFOC-20130112167

PATIENT
  Age: 32 Year
  Sex: Male

DRUGS (4)
  1. LEUSTATIN [Suspect]
     Indication: HAIRY CELL LEUKAEMIA
     Dosage: 10 MG PER 10 ML
     Route: 042
     Dates: start: 20121031, end: 20121107
  2. BACTRIM [Suspect]
     Indication: ANTIBIOTIC PROPHYLAXIS
     Dosage: 160 MG +800 MG
     Route: 048
     Dates: start: 20121105, end: 20121115
  3. ITRACONAZOLE [Concomitant]
     Indication: ANTIBIOTIC PROPHYLAXIS
     Route: 048
     Dates: start: 20121105, end: 20121117
  4. ACICLOVIR [Concomitant]
     Indication: ANTIVIRAL PROPHYLAXIS
     Route: 048
     Dates: start: 20121105, end: 20121117

REACTIONS (1)
  - Drug reaction with eosinophilia and systemic symptoms [Recovered/Resolved]
